FAERS Safety Report 4960855-9 (Version None)
Quarter: 2006Q2

REPORT INFORMATION
  Report Type: 
  Country: None (occurrence: None)
  Receive Date: 20060403
  Receipt Date: 20060323
  Transmission Date: 20061013
  Serious: Yes (Other)
  Sender: FDA-Public Use
  Company Number: BR-ROCHE-441755

PATIENT
  Age: 21 Year
  Sex: Male
  Weight: 93.5 kg

DRUGS (3)
  1. XENICAL [Suspect]
     Route: 048
     Dates: start: 20060115
  2. ANTIDEPRESSANT NOS [Concomitant]
     Indication: DEPRESSION
     Route: 048
  3. UNSPECIFIED DRUGS [Concomitant]

REACTIONS (1)
  - CONVULSION [None]
